FAERS Safety Report 6469806-1 (Version None)
Quarter: 2009Q4

REPORT INFORMATION
  Report Type: 
  Country: None (occurrence: None)
  Receive Date: 20091203
  Receipt Date: 20080619
  Transmission Date: 20100525
  Serious: Yes (Life-Threatening, Hospitalization, Other)
  Sender: FDA-Public Use
  Company Number: SE-ELI_LILLY_AND_COMPANY-SE200712003919

PATIENT
  Sex: Female

DRUGS (3)
  1. TERIPARATIDE [Suspect]
     Indication: OSTEOPOROSIS
     Dosage: 20 UG, DAILY (1/D)
     Route: 065
     Dates: start: 20070314, end: 20071212
  2. KALCIPOS-D [Concomitant]
     Indication: OSTEOPOROSIS
     Dosage: 1 D/F (500MG CA+400IU VIT D), 2/D
     Route: 065
     Dates: start: 20071211, end: 20071217
  3. MIACALCIN [Concomitant]
     Indication: BLOOD CALCIUM INCREASED
     Dosage: 1 D/F, ONCE
     Route: 065

REACTIONS (2)
  - HYPERCALCAEMIA [None]
  - SKIN ULCER [None]
